FAERS Safety Report 9337621 (Version 2)
Quarter: 2013Q3

REPORT INFORMATION
  Report Type: Spontaneous
  Country: US (occurrence: US)
  Receive Date: 20130607
  Receipt Date: 20130701
  Transmission Date: 20140515
  Serious: Yes (Other)
  Sender: FDA-Public Use
  Company Number: US-TEVA-400761USA

PATIENT
  Sex: Female

DRUGS (1)
  1. AZITHROMYCIN [Suspect]
     Indication: INFLUENZA
     Dates: start: 201303

REACTIONS (15)
  - Loss of consciousness [Unknown]
  - Eye haemorrhage [Not Recovered/Not Resolved]
  - Adverse event [Unknown]
  - Renal disorder [Unknown]
  - Renal pain [Unknown]
  - Burning sensation [Unknown]
  - Feeling abnormal [Unknown]
  - Amnesia [Unknown]
  - Ocular hyperaemia [Unknown]
  - Fatigue [Unknown]
  - Eye pain [Unknown]
  - Dizziness [Unknown]
  - Gastric disorder [Unknown]
  - Pain [Unknown]
  - Malaise [Unknown]
